FAERS Safety Report 14607176 (Version 1)
Quarter: 2018Q1

REPORT INFORMATION
  Report Type: Spontaneous
  Country: US (occurrence: US)
  Receive Date: 20180306
  Receipt Date: 20180306
  Transmission Date: 20180509
  Serious: Yes (Disabling)
  Sender: FDA-Public Use
  Company Number: None

PATIENT
  Age: 72 Year
  Sex: Female
  Weight: 52.16 kg

DRUGS (14)
  1. DULOXETINE. [Concomitant]
     Active Substance: DULOXETINE
  2. CALCIUM [Concomitant]
     Active Substance: CALCIUM
  3. CLONIDINE. [Concomitant]
     Active Substance: CLONIDINE
  4. LORAZEPAM. [Concomitant]
     Active Substance: LORAZEPAM
  5. GABAPENTIN. [Concomitant]
     Active Substance: GABAPENTIN
  6. HYDROCODONE [Concomitant]
     Active Substance: HYDROCODONE
  7. VITAMIN D [Concomitant]
     Active Substance: CHOLECALCIFEROL
  8. MAGNESIUM [Concomitant]
     Active Substance: MAGNESIUM
  9. AMLODIPINE [Concomitant]
     Active Substance: AMLODIPINE BESYLATE
  10. CARVEDILOL. [Concomitant]
     Active Substance: CARVEDILOL
  11. ADVIL [Concomitant]
     Active Substance: IBUPROFEN
  12. MIRALAX [Concomitant]
     Active Substance: POLYETHYLENE GLYCOL 3350
  13. PROLIA [Suspect]
     Active Substance: DENOSUMAB
     Indication: OSTEOPOROSIS
     Dosage: EVERY 6 MO. INJECTION-ARM
     Dates: start: 20170515
  14. PANTOPRAZOLE [Concomitant]
     Active Substance: PANTOPRAZOLE

REACTIONS (18)
  - Oral mucosal blistering [None]
  - Pain in jaw [None]
  - Headache [None]
  - Tinnitus [None]
  - Mental disorder [None]
  - Pain [None]
  - Musculoskeletal stiffness [None]
  - Dysphagia [None]
  - Alopecia [None]
  - Dry skin [None]
  - Back pain [None]
  - Arthralgia [None]
  - Hypoaesthesia [None]
  - Urinary tract infection [None]
  - Abdominal pain upper [None]
  - Dysphonia [None]
  - Rhinorrhoea [None]
  - Eating disorder [None]

NARRATIVE: CASE EVENT DATE: 20170515
